FAERS Safety Report 8201397-7 (Version None)
Quarter: 2012Q1

REPORT INFORMATION
  Report Type: 
  Country: None (occurrence: None)
  Receive Date: 20120308
  Receipt Date: 20120229
  Transmission Date: 20120608
  Serious: Yes (Other)
  Sender: FDA-Public Use
  Company Number: AUR-APL-2012-01205

PATIENT
  Age: 35 Year
  Sex: Female

DRUGS (3)
  1. CEPHALEXIN [Suspect]
     Indication: INFECTION
     Dosage: ORAL
     Route: 048
  2. AMOXICILLIN [Concomitant]
  3. HAEM ARGINATE [Concomitant]

REACTIONS (2)
  - PORPHYRIA [None]
  - CONDITION AGGRAVATED [None]
